FAERS Safety Report 11865913 (Version 2)
Quarter: 2016Q1

REPORT INFORMATION
  Report Type: Spontaneous
  Country: US (occurrence: US)
  Receive Date: 20151223
  Receipt Date: 20160222
  Transmission Date: 20160526
  Serious: Yes (Other)
  Sender: FDA-Public Use
  Company Number: US-SA-2015SA213178

PATIENT
  Age: 87 Year
  Sex: Male

DRUGS (1)
  1. ALLEGRA [Suspect]
     Active Substance: FEXOFENADINE HYDROCHLORIDE
     Indication: SINUS OPERATION
     Dosage: START DATE: FOR ABOUT ONE MONTH?FORM: HARD GELATIN CAPSULE
     Route: 065

REACTIONS (4)
  - Choking [Unknown]
  - Cough [Unknown]
  - Product quality issue [Unknown]
  - Hypoacusis [Unknown]
